FAERS Safety Report 17015655 (Version 1)
Quarter: 2019Q4

REPORT INFORMATION
  Report Type: Spontaneous
  Country: GB (occurrence: GB)
  Receive Date: 20191111
  Receipt Date: 20191111
  Transmission Date: 20200122
  Serious: Yes (Disabling)
  Sender: FDA-Public Use
  Company Number: GB-AMGEN-GBRSP2019183617

PATIENT
  Age: 51 Year
  Sex: Male

DRUGS (3)
  1. ARCOXIA [Concomitant]
     Active Substance: ETORICOXIB
     Dosage: UNK
  2. ADALIMUMAB [Suspect]
     Active Substance: ADALIMUMAB
     Indication: RHEUMATOID ARTHRITIS
     Dosage: 40 MILLIGRAM, Q2WK
     Route: 048
     Dates: start: 20091203, end: 20170908
  3. LANSOPRAZOLE. [Concomitant]
     Active Substance: LANSOPRAZOLE
     Dosage: UNK

REACTIONS (1)
  - Tongue ulceration [Unknown]
